FAERS Safety Report 15179682 (Version 1)
Quarter: 2018Q3

REPORT INFORMATION
  Report Type: Report from Study
  Country: None (occurrence: US)
  Receive Date: 20180723
  Receipt Date: 20180723
  Transmission Date: 20181010
  Serious: Yes (Hospitalization, Other)
  Sender: FDA-Public Use
  Company Number: US-ABBVIE-18K-163-2420889-00

PATIENT
  Age: 42 Year
  Sex: Male

DRUGS (1)
  1. HUMIRA [Suspect]
     Active Substance: ADALIMUMAB
     Indication: CROHN^S DISEASE
     Route: 058
     Dates: start: 2005

REACTIONS (3)
  - Thyroid cancer metastatic [Not Recovered/Not Resolved]
  - Goitre [Not Recovered/Not Resolved]
  - BRAF gene mutation [Not Recovered/Not Resolved]

NARRATIVE: CASE EVENT DATE: 2018
